FAERS Safety Report 4315288-5 (Version None)
Quarter: 2004Q1

REPORT INFORMATION
  Report Type: 
  Country: None (occurrence: None)
  Receive Date: 20040309
  Receipt Date: 20040225
  Transmission Date: 20041129
  Serious: Yes (Hospitalization)
  Sender: FDA-Public Use
  Company Number: USA040260266

PATIENT
  Age: 69 Year
  Sex: Female

DRUGS (1)
  1. HUMALOG [Suspect]
     Indication: DIABETES MELLITUS
     Dosage: UNK
     Route: 065
     Dates: start: 20020201

REACTIONS (6)
  - BREAST CANCER [None]
  - DEVICE FAILURE [None]
  - DIABETES MELLITUS INADEQUATE CONTROL [None]
  - MEDICATION ERROR [None]
  - OVARIAN CYST [None]
  - PHARMACEUTICAL PRODUCT COMPLAINT [None]
